FAERS Safety Report 6864129-0 (Version None)
Quarter: 2010Q3

REPORT INFORMATION
  Report Type: 
  Country: None (occurrence: None)
  Receive Date: 20100721
  Receipt Date: 20100707
  Transmission Date: 20110219
  Serious: Yes (Death)
  Sender: FDA-Public Use
  Company Number: JP-AMGEN-KDC415451

PATIENT
  Sex: Male

DRUGS (9)
  1. ARANESP [Suspect]
     Indication: RENAL FAILURE CHRONIC
     Route: 042
     Dates: start: 20081028, end: 20090811
  2. LASIX [Concomitant]
     Route: 048
  3. LIPITOR [Concomitant]
     Route: 048
  4. AMLODIN [Concomitant]
     Route: 048
  5. DORNER [Concomitant]
     Route: 048
  6. D ALFA [Concomitant]
     Route: 048
  7. HEPARIN SODIUM [Concomitant]
     Route: 042
  8. SEVELAMER HCL [Concomitant]
     Route: 048
  9. ASPIRIN [Concomitant]
     Route: 048

REACTIONS (1)
  - CEREBRAL HAEMORRHAGE [None]
